FAERS Safety Report 16346994 (Version 1)
Quarter: 2019Q2

REPORT INFORMATION
  Report Type: Spontaneous
  Country: CA (occurrence: CA)
  Receive Date: 20190523
  Receipt Date: 20190523
  Transmission Date: 20190711
  Serious: Yes (Other)
  Sender: FDA-Public Use
  Company Number: CA-AUROBINDO-AUR-APL-2019-028008

PATIENT

DRUGS (3)
  1. TRAMADOL+PARACETAMOL [Suspect]
     Active Substance: ACETAMINOPHEN\TRAMADOL
     Indication: NEUROPATHY PERIPHERAL
     Dosage: 37.5 MILLIGRAM
     Route: 048
  2. TRAMADOL+PARACETAMOL TABLET [Suspect]
     Active Substance: ACETAMINOPHEN\TRAMADOL
     Indication: NEUROPATHY PERIPHERAL
     Dosage: 0.5 DOSAGE FORM
     Route: 048
  3. LYRICA [Suspect]
     Active Substance: PREGABALIN
     Indication: PRODUCT USED FOR UNKNOWN INDICATION
     Dosage: UNK
     Route: 065

REACTIONS (3)
  - Product prescribing error [Unknown]
  - Off label use [Unknown]
  - Respiratory depression [Unknown]
